FAERS Safety Report 4546629-1 (Version None)
Quarter: 2005Q1

REPORT INFORMATION
  Report Type: 
  Country: None (occurrence: None)
  Receive Date: 20050103
  Receipt Date: 20041209
  Transmission Date: 20050727
  Serious: Yes (Other)
  Sender: FDA-Public Use
  Company Number: JP_041205380

PATIENT
  Age: 65 Year
  Sex: Male

DRUGS (5)
  1. VINCRISTINE SULFATE [Suspect]
     Indication: B-CELL LYMPHOMA
     Dosage: 1.4 MG/M2 OTHER
  2. RITUXIMAB [Concomitant]
  3. CYCLOPHOSPHAMIDE [Concomitant]
  4. ADRIAMYCIN PFS [Concomitant]
  5. PREDNISOLONE [Concomitant]

REACTIONS (1)
  - NEUTROPENIA [None]
